FAERS Safety Report 14826835 (Version 1)
Quarter: 2018Q2

REPORT INFORMATION
  Report Type: Report from Study
  Country: JP (occurrence: JP)
  Receive Date: 20180430
  Receipt Date: 20180430
  Transmission Date: 20180711
  Serious: Yes (Death)
  Sender: FDA-Public Use
  Company Number: JP-BAYER-2017-235078

PATIENT
  Age: 76 Year
  Sex: Female
  Weight: 44.5 kg

DRUGS (12)
  1. PHOSBLOCK [Concomitant]
     Active Substance: FERRIC HYDROXIDE
     Indication: HYPERPHOSPHATAEMIA
     Dosage: DAILY DOSE 3500 MG
     Route: 048
  2. BAYASPIRIN 100 MG [Suspect]
     Active Substance: ASPIRIN
     Dosage: DAILY DOSE 200 MG
     Route: 048
  3. CALCIUM CARBONATE. [Concomitant]
     Active Substance: CALCIUM CARBONATE
     Indication: HYPERPHOSPHATAEMIA
     Dosage: DAILY DOSE 1500 MG
     Route: 048
  4. KALIMATE [Concomitant]
     Active Substance: CALCIUM POLYSTYRENE SULFONATE
     Dosage: DAILY DOSE 5 G
     Route: 048
  5. OLMETEC [Concomitant]
     Active Substance: OLMESARTAN MEDOXOMIL
     Dosage: DAILY DOSE 20 MG
     Route: 048
  6. EVAMYL 1 MG [Suspect]
     Active Substance: LORMETAZEPAM
     Dosage: DAILY DOSE 1 MG
     Route: 048
  7. OXAROL [Concomitant]
     Active Substance: MAXACALCITOL
     Dosage: DAILY DOSE 5 MCG/ML
     Route: 042
  8. LACTULOSE. [Concomitant]
     Active Substance: LACTULOSE
     Dosage: DAILY DOSE 21 ML
     Route: 048
  9. FOSRENOL [Suspect]
     Active Substance: LANTHANUM CARBONATE
     Indication: HYPERPHOSPHATAEMIA
     Dosage: DAILY DOSE 750MG
     Route: 048
     Dates: start: 20091010, end: 20170315
  10. MUCOSTA [Concomitant]
     Active Substance: REBAMIPIDE
     Dosage: DAILY DOSE 300 MG
     Route: 048
  11. YOUBIQUINON MITA [Concomitant]
     Dosage: DAILY DOSE 30 MG
     Route: 048
  12. EPOGIN [Concomitant]
     Active Substance: ERYTHROPOIETIN
     Dosage: DAILY DOSE 1500 IU
     Route: 042

REACTIONS (1)
  - Subdural haematoma [Fatal]

NARRATIVE: CASE EVENT DATE: 20170316
